FAERS Safety Report 5703102-2 (Version None)
Quarter: 2008Q2

REPORT INFORMATION
  Report Type: 
  Country: None (occurrence: None)
  Receive Date: 20080411
  Receipt Date: 20080406
  Transmission Date: 20081010
  Serious: No
  Sender: FDA-Public Use
  Company Number: US-BAXTER-2008BH003273

PATIENT

DRUGS (2)
  1. FEIBA VH IMMUNO [Suspect]
     Indication: HAEMORRHAGE
     Dosage: DOSE UNIT:UNKNOWN
     Route: 065
  2. RECOMBINANT FACTOR VIIA [Suspect]
     Indication: HAEMORRHAGE
     Dosage: DOSE UNIT:UNKNOWN
     Route: 065

REACTIONS (1)
  - PULMONARY EMBOLISM [None]
